FAERS Safety Report 11829181 (Version 2)
Quarter: 2015Q4

REPORT INFORMATION
  Report Type: Spontaneous
  Country: MA (occurrence: MA)
  Receive Date: 20151211
  Receipt Date: 20151218
  Transmission Date: 20160305
  Serious: Yes (Death)
  Sender: FDA-Public Use
  Company Number: MA-PFIZER INC-2015433124

PATIENT
  Sex: Female

DRUGS (1)
  1. PROSTINE VR [Suspect]
     Active Substance: ALPROSTADIL
     Indication: VASODILATATION
     Dosage: UNK
     Dates: start: 20151102

REACTIONS (1)
  - Cardiogenic shock [Fatal]

NARRATIVE: CASE EVENT DATE: 2015
